FAERS Safety Report 20484904 (Version 1)
Quarter: 2022Q1

REPORT INFORMATION
  Report Type: Spontaneous
  Country: US (occurrence: US)
  Receive Date: 20220217
  Receipt Date: 20220217
  Transmission Date: 20220423
  Serious: No
  Sender: FDA-Public Use
  Company Number: US-SA-SAC20220210000860

PATIENT
  Sex: Female

DRUGS (2)
  1. DUPIXENT [Suspect]
     Active Substance: DUPILUMAB
     Indication: Chronic rhinosinusitis with nasal polyps
     Dosage: 1 DF, QOW
     Route: 058
     Dates: start: 20211102
  2. DUPIXENT [Suspect]
     Active Substance: DUPILUMAB
     Indication: Nasal polyps

REACTIONS (8)
  - Pain [Unknown]
  - Eye pruritus [Unknown]
  - Dry eye [Unknown]
  - Lacrimation increased [Unknown]
  - Sinusitis [Unknown]
  - Nasal polyps [Unknown]
  - Symptom recurrence [Unknown]
  - Product use in unapproved indication [Unknown]
